FAERS Safety Report 6228687-1 (Version None)
Quarter: 2009Q2

REPORT INFORMATION
  Report Type: 
  Country: None (occurrence: None)
  Receive Date: 20090615
  Receipt Date: 20090609
  Transmission Date: 20091009
  Serious: Yes (Disabling, Other)
  Sender: FDA-Public Use
  Company Number: BR-BAYER-200913382LA

PATIENT
  Age: 40 Year
  Sex: Female

DRUGS (6)
  1. BETAFERON [Suspect]
     Indication: MULTIPLE SCLEROSIS
     Route: 058
     Dates: start: 20081204
  2. BETAFERON [Suspect]
     Route: 058
     Dates: end: 20090322
  3. SERTRALINE HCL [Concomitant]
     Indication: DEPRESSION
     Route: 048
     Dates: start: 20081201, end: 20090306
  4. AMITRIPTLINE HYDROCHLORIDE TAB [Concomitant]
  5. UNKNOWN DRUG [Concomitant]
     Indication: BALANCE DISORDER
     Route: 065
     Dates: start: 20081201
  6. PROPRANOLOL HYDROCHLORIDE [Concomitant]
     Indication: HEADACHE
     Route: 065
     Dates: start: 20081201

REACTIONS (10)
  - DELUSION [None]
  - DEPRESSION [None]
  - FEAR [None]
  - FEELING OF DESPAIR [None]
  - HALLUCINATION [None]
  - HALLUCINATION, AUDITORY [None]
  - HALLUCINATION, VISUAL [None]
  - MEMORY IMPAIRMENT [None]
  - RESTLESSNESS [None]
  - SCHIZOPHRENIA [None]
